FAERS Safety Report 24113609 (Version 1)
Quarter: 2024Q3

REPORT INFORMATION
  Report Type: Spontaneous
  Country: NL (occurrence: NL)
  Receive Date: 20240720
  Receipt Date: 20240720
  Transmission Date: 20241017
  Serious: Yes (Other)
  Sender: TEVA
  Company Number: None

PATIENT
  Age: 31 Year
  Sex: Female
  Weight: 70 kg

DRUGS (1)
  1. ETHINYL ESTRADIOL\LEVONORGESTREL [Suspect]
     Active Substance: ETHINYL ESTRADIOL\LEVONORGESTREL
     Indication: Contraception
     Dosage: 1DD1, FORM STRENGTH: 30/150UG, BRAND NAME NOT SPECIFIED, DURATION: 6 DAYS, ROA: UNKNOWN
     Route: 065
     Dates: start: 20230510, end: 20230515

REACTIONS (1)
  - Syncope [Recovered/Resolved]
